FAERS Safety Report 5726100-1 (Version None)
Quarter: 2008Q2

REPORT INFORMATION
  Report Type: 
  Country: None (occurrence: None)
  Receive Date: 20080501
  Receipt Date: 20080501
  Transmission Date: 20081010
  Serious: Yes (Life-Threatening)
  Sender: FDA-Public Use
  Company Number: None

PATIENT
  Age: 58 Year
  Sex: Male
  Weight: 83.9154 kg

DRUGS (1)
  1. DIGITEK  0.25MG  UDL LABS [Suspect]
     Indication: CARDIAC FAILURE
     Dosage: ONE PILL DAILY PO
     Route: 048
     Dates: start: 20070227, end: 20080428

REACTIONS (4)
  - ADVERSE DRUG REACTION [None]
  - HEART RATE IRREGULAR [None]
  - LOSS OF CONSCIOUSNESS [None]
  - PHARMACEUTICAL PRODUCT COMPLAINT [None]
